FAERS Safety Report 17974634 (Version 1)
Quarter: 2020Q3

REPORT INFORMATION
  Report Type: Spontaneous
  Country: CH (occurrence: CH)
  Receive Date: 20200702
  Receipt Date: 20200702
  Transmission Date: 20201103
  Serious: Yes (Hospitalization, Other)
  Sender: FDA-Public Use
  Company Number: CH-SUNOVION-2020SUN001899

PATIENT
  Age: 3 Decade
  Sex: Female

DRUGS (4)
  1. LATUDA [Suspect]
     Active Substance: LURASIDONE HYDROCHLORIDE
     Dosage: 40 MG
     Route: 048
  2. QUETIAPINE XR [Concomitant]
     Active Substance: QUETIAPINE
     Dosage: BETWEEN 300 AND 500 MG
  3. LATUDA [Suspect]
     Active Substance: LURASIDONE HYDROCHLORIDE
     Indication: SCHIZOAFFECTIVE DISORDER
     Dosage: INCREASED UNTIL 160 MG
     Route: 048
  4. LATUDA [Suspect]
     Active Substance: LURASIDONE HYDROCHLORIDE
     Dosage: 20 MG
     Route: 048

REACTIONS (5)
  - Drug ineffective for unapproved indication [Unknown]
  - Vascular graft [Unknown]
  - Off label use [Unknown]
  - Schizoaffective disorder [Unknown]
  - Tremor [Unknown]
